FAERS Safety Report 7038054-9 (Version None)
Quarter: 2010Q4

REPORT INFORMATION
  Report Type: 
  Country: None (occurrence: None)
  Receive Date: 20101011
  Receipt Date: 20100929
  Transmission Date: 20110411
  Serious: Yes (Other)
  Sender: FDA-Public Use
  Company Number: US-PFIZER INC-2010124678

PATIENT
  Sex: Male
  Weight: 90.718 kg

DRUGS (10)
  1. LYRICA [Suspect]
     Dosage: 50 MG, 1X/DAY
     Dates: start: 20100728, end: 20100730
  2. FLOMAX [Concomitant]
     Dosage: 0.4 MG, UNK
  3. CRESTOR [Concomitant]
     Dosage: 10 MG, UNK
  4. MULTIVITAMIN [Concomitant]
     Indication: EYE DISORDER
  5. ACETYLSALICYLIC ACID [Concomitant]
     Dosage: 81 MG, UNK
  6. MULTI-VITAMINS [Concomitant]
  7. VITAMIN E [Concomitant]
     Dosage: 400 MG, UNK
  8. PRILOSEC [Concomitant]
     Dosage: UNK, AS NEEDED
  9. VALIUM [Concomitant]
     Dosage: 5 MG AS NEEDED
  10. AMIODARONE [Concomitant]
     Indication: ATRIAL FIBRILLATION
     Dosage: 100 MG, UNK

REACTIONS (8)
  - DECREASED APPETITE [None]
  - DIZZINESS [None]
  - DRY MOUTH [None]
  - DYSGEUSIA [None]
  - GLOSSODYNIA [None]
  - HEADACHE [None]
  - SALIVA DISCOLOURATION [None]
  - WEIGHT DECREASED [None]
